FAERS Safety Report 11534067 (Version 2)
Quarter: 2015Q3

REPORT INFORMATION
  Report Type: Report from Study
  Country: CA (occurrence: CA)
  Receive Date: 20150922
  Receipt Date: 20150928
  Transmission Date: 20151125
  Serious: Yes (Other)
  Sender: FDA-Public Use
  Company Number: CA-ROCHE-1629797

PATIENT
  Sex: Female

DRUGS (13)
  1. TRIMETHOPRIM. [Suspect]
     Active Substance: TRIMETHOPRIM
     Indication: PRODUCT USED FOR UNKNOWN INDICATION
     Route: 048
     Dates: start: 2013, end: 2013
  2. AZATHIOPRINE. [Suspect]
     Active Substance: AZATHIOPRINE
     Route: 065
  3. DESMOPRESSIN [Concomitant]
     Active Substance: DESMOPRESSIN
  4. CYCLOPHOSPHAMIDE. [Suspect]
     Active Substance: CYCLOPHOSPHAMIDE
     Indication: GRANULOMATOSIS WITH POLYANGIITIS
     Route: 042
     Dates: start: 2013
  5. RITUXAN [Suspect]
     Active Substance: RITUXIMAB
     Indication: GRANULOMATOSIS WITH POLYANGIITIS
     Dosage: LAST DOSE PRIOR TO SAE OF RITUXIMAB /JUL/2013
     Route: 042
     Dates: start: 201306
  6. SULFAMETOXAZOL [Suspect]
     Active Substance: SULFAMETHOXAZOLE
     Indication: PRODUCT USED FOR UNKNOWN INDICATION
     Route: 048
     Dates: start: 2013
  7. AZATHIOPRINE. [Suspect]
     Active Substance: AZATHIOPRINE
     Indication: PRODUCT USED FOR UNKNOWN INDICATION
     Route: 065
  8. PREDNISONE. [Concomitant]
     Active Substance: PREDNISONE
  9. ACETAMINOPHEN. [Concomitant]
     Active Substance: ACETAMINOPHEN
     Indication: PREMEDICATION
     Route: 065
     Dates: start: 20150915
  10. DIPHENHYDRAMINE HCL [Concomitant]
     Active Substance: DIPHENHYDRAMINE HYDROCHLORIDE
     Indication: PREMEDICATION
     Route: 065
     Dates: start: 20150915
  11. METHYLPREDNISONE (UNK INGREDIENTS) [Concomitant]
     Indication: PREMEDICATION
     Route: 042
     Dates: start: 20150915
  12. RITUXAN [Suspect]
     Active Substance: RITUXIMAB
     Dosage: LAST DOSE PRIOR TO SAE : 15/SEP/2015
     Route: 042
     Dates: start: 20130718
  13. AMITRIPTYLINE [Concomitant]
     Active Substance: AMITRIPTYLINE

REACTIONS (19)
  - Pain [Not Recovered/Not Resolved]
  - Hypotension [Unknown]
  - Granulomatosis with polyangiitis [Unknown]
  - Leukopenia [Unknown]
  - Emotional distress [Unknown]
  - Arthralgia [Unknown]
  - Frustration [None]
  - Insomnia [Unknown]
  - Malaise [Unknown]
  - Headache [Unknown]
  - Blood disorder [Unknown]
  - Pituitary tumour [Not Recovered/Not Resolved]
  - Pulmonary haemorrhage [Unknown]
  - Hepatic infection [Unknown]
  - Inflammation [Unknown]
  - Lower respiratory tract infection [Unknown]
  - Renal pain [Unknown]
  - Lower respiratory tract inflammation [None]
  - Diabetes insipidus [Not Recovered/Not Resolved]

NARRATIVE: CASE EVENT DATE: 2013
